FAERS Safety Report 24948210 (Version 2)
Quarter: 2025Q3

REPORT INFORMATION
  Report Type: Report from Study
  Country: US (occurrence: US)
  Receive Date: 20250210
  Receipt Date: 20250803
  Transmission Date: 20251021
  Serious: Yes (Other)
  Sender: ALEXION PHARMACEUTICALS
  Company Number: US-AstraZeneca-CH-00791907A

PATIENT
  Age: 70 Year
  Sex: Female
  Weight: 105 kg

DRUGS (1)
  1. GLYCOPYRRONIUM\FORMOTEROL FUMARATE [Suspect]
     Active Substance: GLYCOPYRRONIUM\FORMOTEROL FUMARATE

REACTIONS (2)
  - Hepatic cancer [Not Recovered/Not Resolved]
  - Uveal melanoma [Unknown]

NARRATIVE: CASE EVENT DATE: 20210629
